FAERS Safety Report 23701750 (Version 2)
Quarter: 2024Q2

REPORT INFORMATION
  Report Type: Spontaneous
  Country: ID (occurrence: ID)
  Receive Date: 20240403
  Receipt Date: 20240409
  Transmission Date: 20240716
  Serious: Yes (Hospitalization, Other)
  Sender: FDA-Public Use
  Company Number: ID-PFIZER INC-PV202400042851

PATIENT
  Age: 70 Year
  Sex: Female

DRUGS (3)
  1. IBRANCE [Suspect]
     Active Substance: PALBOCICLIB
     Indication: Breast cancer metastatic
     Dosage: 1X/DAY 21 DAYS FOLLOWED BY 7 DAYS OFF
     Route: 048
     Dates: start: 202403
  2. FULVESTRANT [Suspect]
     Active Substance: FULVESTRANT
     Indication: Breast cancer metastatic
     Dosage: UNK
  3. FULVESTRANT [Suspect]
     Active Substance: FULVESTRANT
     Dosage: WEEKLY FOR FIRST AND SECOND WEEK, CONTINUE WITH MONTHLY
     Dates: start: 202403

REACTIONS (2)
  - Atrial fibrillation [Recovered/Resolved]
  - Humerus fracture [Unknown]

NARRATIVE: CASE EVENT DATE: 20240301
